FAERS Safety Report 8501783-1 (Version None)
Quarter: 2012Q3

REPORT INFORMATION
  Report Type: 
  Country: None (occurrence: None)
  Receive Date: 20120705
  Receipt Date: 20120705
  Transmission Date: 20120928
  Serious: Yes (Other)
  Sender: FDA-Public Use
  Company Number: None

PATIENT
  Sex: Female

DRUGS (7)
  1. METAPROPALOL [Concomitant]
  2. ALBUTEROL SULFATE AUTOHALER [Concomitant]
  3. CEPHALEXIN [Suspect]
     Indication: URINARY TRACT INFECTION
     Dosage: 500MG 3 TIMES A DAY
     Dates: start: 20120627, end: 20120702
  4. SINGULAIR [Concomitant]
  5. ADVAIR DISKUS 100/50 [Concomitant]
  6. NEBULIZER-BUDENSIDE [Concomitant]
  7. DIOVAN [Concomitant]

REACTIONS (1)
  - PAIN IN EXTREMITY [None]
